FAERS Safety Report 5052956-4 (Version None)
Quarter: 2006Q3

REPORT INFORMATION
  Report Type: 
  Country: None (occurrence: None)
  Receive Date: 20060712
  Receipt Date: 20060626
  Transmission Date: 20061208
  Serious: Yes (Other)
  Sender: FDA-Public Use
  Company Number: US-2006-016906

PATIENT
  Age: 45 Year
  Sex: Female

DRUGS (1)
  1. BETASERON [Suspect]
     Indication: MULTIPLE SCLEROSIS
     Dosage: 8 MIU, EVERY 2D, SUBCUTANEOUS
     Route: 058
     Dates: start: 20060210

REACTIONS (7)
  - COMA [None]
  - DELUSION [None]
  - DEPRESSION [None]
  - HALLUCINATION [None]
  - INJECTION SITE RASH [None]
  - MENTAL STATUS CHANGES [None]
  - POST PROCEDURAL COMPLICATION [None]
